FAERS Safety Report 5704152-2 (Version None)
Quarter: 2008Q2

REPORT INFORMATION
  Report Type: 
  Country: None (occurrence: None)
  Receive Date: 20080409
  Receipt Date: 20080331
  Transmission Date: 20081010
  Serious: Yes (Death, Hospitalization)
  Sender: FDA-Public Use
  Company Number: TAP2008Q00139

PATIENT
  Age: 84 Year
  Sex: Male
  Weight: 73.5 kg

DRUGS (7)
  1. LUPRON DEPOT-3 [Suspect]
     Indication: PROSTATE CANCER
     Dosage: 22.5 MG, 1 IN 3 M, INTRAMUSCULAR
     Route: 030
     Dates: start: 20070806
  2. BICALUTAMIDE [Concomitant]
  3. RANITIDINE [Concomitant]
  4. FLOMAX (MORNIFLUMATE) [Concomitant]
  5. SYNTHROID [Concomitant]
  6. SLOW-K [Concomitant]
  7. CALCIUM (CALCIUM) [Concomitant]

REACTIONS (2)
  - ANAEMIA [None]
  - ASTHENIA [None]
